FAERS Safety Report 12280541 (Version 1)
Quarter: 2016Q2

REPORT INFORMATION
  Report Type: Spontaneous
  Country: US (occurrence: None)
  Receive Date: 20160418
  Receipt Date: 20160418
  Transmission Date: 20160815
  Serious: Yes (Disabling, Other)
  Sender: FDA-Public Use
  Company Number: None

PATIENT
  Age: 62 Year
  Sex: Female

DRUGS (10)
  1. METFORMIN [Concomitant]
     Active Substance: METFORMIN HYDROCHLORIDE
  2. DILTIAZEM [Concomitant]
     Active Substance: DILTIAZEM
  3. ALPRAZOLAM. [Concomitant]
     Active Substance: ALPRAZOLAM
  4. LATUDA [Suspect]
     Active Substance: LURASIDONE HYDROCHLORIDE
     Indication: SCHIZOPHRENIA
     Dosage: 1 PILL DAILY MOUTH
     Route: 048
     Dates: start: 20130613, end: 201507
  5. LISINOPRIL. [Concomitant]
     Active Substance: LISINOPRIL
  6. LEVOTHYROXINE. [Concomitant]
     Active Substance: LEVOTHYROXINE
  7. PAROXETINE. [Concomitant]
     Active Substance: PAROXETINE
  8. MELOXICAM. [Concomitant]
     Active Substance: MELOXICAM
  9. XENAZINE [Concomitant]
     Active Substance: TETRABENAZINE
  10. CLONIDINE. [Concomitant]
     Active Substance: CLONIDINE

REACTIONS (10)
  - Fall [None]
  - Feeding disorder [None]
  - Movement disorder [None]
  - Oromandibular dystonia [None]
  - Speech disorder [None]
  - Pain in jaw [None]
  - Jaw disorder [None]
  - Tardive dyskinesia [None]
  - Muscle disorder [None]
  - Facial paralysis [None]

NARRATIVE: CASE EVENT DATE: 201506
